FAERS Safety Report 18758192 (Version 2)
Quarter: 2021Q1

REPORT INFORMATION
  Report Type: Spontaneous
  Country: TW (occurrence: TW)
  Receive Date: 20210119
  Receipt Date: 20210219
  Transmission Date: 20210419
  Serious: Yes (Other)
  Sender: FDA-Public Use
  Company Number: TW-BAYER-2021-029474

PATIENT
  Age: 56 Year
  Sex: Male

DRUGS (1)
  1. KOGENATE [Suspect]
     Active Substance: ANTIHEMOPHILIC FACTOR, HUMAN RECOMBINANT
     Indication: FACTOR VIII DEFICIENCY
     Dosage: 50IU/KG/DOES, PRN
     Dates: start: 2018, end: 201810

REACTIONS (3)
  - Mobility decreased [None]
  - Haemarthrosis [Recovering/Resolving]
  - Discomfort [None]

NARRATIVE: CASE EVENT DATE: 2018
